FAERS Safety Report 21557464 (Version 2)
Quarter: 2023Q1

REPORT INFORMATION
  Report Type: Spontaneous
  Country: PL (occurrence: PL)
  Receive Date: 20221105
  Receipt Date: 20230211
  Transmission Date: 20230417
  Serious: Yes (Hospitalization, Other)
  Sender: FDA-Public Use
  Company Number: PL-MYLANLABS-2022M1116057

PATIENT
  Age: 43 Year
  Sex: Male

DRUGS (34)
  1. ERTAPENEM [Suspect]
     Active Substance: ERTAPENEM
     Indication: Enterobacter infection
     Dosage: 1000 MILLIGRAM, ONCE A DAY
     Route: 042
  2. ERTAPENEM [Suspect]
     Active Substance: ERTAPENEM
     Indication: Urinary tract infection
  3. FLUCONAZOLE [Suspect]
     Active Substance: FLUCONAZOLE
     Indication: Candida infection
     Dosage: 100 MILLIGRAM, TWO TIMES A DAY
     Route: 048
  4. LEVOFLOXACIN [Suspect]
     Active Substance: LEVOFLOXACIN
     Indication: Pulmonary tuberculosis
     Dosage: 500 MILLIGRAM, TWO TIMES A DAY
     Route: 048
  5. LEVOFLOXACIN [Suspect]
     Active Substance: LEVOFLOXACIN
     Indication: Tuberculosis
  6. RITONAVIR [Suspect]
     Active Substance: RITONAVIR
     Indication: Acquired immunodeficiency syndrome
     Dosage: 200 MILLIGRAM, ONCE A DAY(100 MILLIGRAM, BID)
     Route: 065
  7. RITONAVIR [Suspect]
     Active Substance: RITONAVIR
     Dosage: 100 MILLIGRAM, TWO TIMES A DAY
     Route: 065
  8. CLARITHROMYCIN [Suspect]
     Active Substance: CLARITHROMYCIN
     Indication: Tuberculosis
     Dosage: 500 MILLIGRAM, TWO TIMES A DAY
     Route: 048
  9. CLINDAMYCIN [Suspect]
     Active Substance: CLINDAMYCIN
     Indication: Evidence based treatment
     Dosage: 600 MILLIGRAM, 3 TIMES A DAY
     Route: 065
  10. CLOFAZIMINE [Suspect]
     Active Substance: CLOFAZIMINE
     Indication: Tuberculosis
     Dosage: 100 MILLIGRAM, TWO TIMES A DAY
     Route: 048
  11. COTRIMOXAZOLE [Suspect]
     Active Substance: SULFAMETHOXAZOLE\TRIMETHOPRIM
     Indication: Antifungal prophylaxis
     Dosage: 960 MILLIGRAM, EVERY OTHER DAY
     Route: 048
  12. ISENTRESS [Suspect]
     Active Substance: RALTEGRAVIR POTASSIUM
     Indication: Acquired immunodeficiency syndrome
     Dosage: 400 MILLIGRAM, TWO TIMES A DAY(2 X 400 MG DAILY)
     Route: 065
  13. ISENTRESS [Suspect]
     Active Substance: RALTEGRAVIR POTASSIUM
     Dosage: 400 MILLIGRAM, TWO TIMES A DAY
     Route: 065
  14. ISONIAZID [Suspect]
     Active Substance: ISONIAZID
     Indication: Tuberculosis
     Dosage: UNK
     Route: 065
     Dates: start: 201104
  15. ETHIONAMIDE [Suspect]
     Active Substance: ETHIONAMIDE
     Indication: Tuberculosis
     Dosage: 750 MILLIGRAM, TWO TIMES A DAY
     Route: 048
  16. KALETRA [Suspect]
     Active Substance: LOPINAVIR\RITONAVIR
     Indication: Acquired immunodeficiency syndrome
     Dosage: 2 DOSAGE FORM, TWO TIMES A DAY
     Route: 065
  17. KIVEXA [Suspect]
     Active Substance: ABACAVIR SULFATE\LAMIVUDINE
     Indication: Acquired immunodeficiency syndrome
     Dosage: UNK UNK, ONCE A DAY
     Route: 065
     Dates: start: 201112
  18. KIVEXA [Suspect]
     Active Substance: ABACAVIR SULFATE\LAMIVUDINE
     Indication: HIV infection
     Dosage: UNK UNK, ONCE A DAY
     Dates: start: 201112
  19. MEROPENEM [Suspect]
     Active Substance: MEROPENEM
     Indication: Enterobacter infection
     Dosage: 2000 MILLIGRAM, ONCE A DAY
     Route: 042
  20. PREZISTA [Suspect]
     Active Substance: DARUNAVIR ETHANOLATE
     Indication: Acquired immunodeficiency syndrome
     Dosage: 600 MILLIGRAM, TWO TIMES A DAY(600 MILLIGRAM, BID)
     Route: 065
  21. RIFAMPIN [Suspect]
     Active Substance: RIFAMPIN
     Indication: Tuberculosis
     Dosage: UNK
     Route: 065
  22. STREPTOMYCIN [Suspect]
     Active Substance: STREPTOMYCIN SULFATE
     Indication: Tuberculosis
     Dosage: 1.0 GRAM, ONCE A DAY
     Route: 030
  23. EFAVIRENZ [Suspect]
     Active Substance: EFAVIRENZ
     Indication: Acquired immunodeficiency syndrome
     Dosage: 800 MILLIGRAM, ONCE A DAY
     Route: 065
     Dates: start: 2011
  24. TRUVADA [Suspect]
     Active Substance: EMTRICITABINE\TENOFOVIR DISOPROXIL FUMARATE
     Indication: Acquired immunodeficiency syndrome
     Dosage: 1 DOSAGE FORM, ONCE A DAY
     Route: 065
     Dates: start: 2011
  25. ETHAMBUTOL [Concomitant]
     Active Substance: ETHAMBUTOL HYDROCHLORIDE
     Indication: Tuberculosis
     Dosage: UNK
     Route: 065
  26. FOSFOMYCIN [Concomitant]
     Active Substance: FOSFOMYCIN
     Indication: Enterobacter infection
     Dosage: UNK(INTERMITTENT)
     Route: 065
  27. FOSFOMYCIN [Concomitant]
     Active Substance: FOSFOMYCIN
     Indication: Urinary tract infection
  28. GANCICLOVIR [Concomitant]
     Active Substance: GANCICLOVIR
     Indication: Cytomegalovirus chorioretinitis
     Dosage: 250 MILLIGRAM, TWO TIMES A DAY(21 DAYS)
     Route: 042
  29. OSELTAMIVIR [Concomitant]
     Active Substance: OSELTAMIVIR
     Indication: H1N1 influenza
     Dosage: 75 MILLIGRAM, TWO TIMES A DAY(2 X 75 MG ORALLY)
     Route: 048
  30. PYRIMETHAMINE [Concomitant]
     Active Substance: PYRIMETHAMINE
     Indication: Evidence based treatment
     Dosage: 50 MILLIGRAM, ONCE A DAY
     Route: 048
  31. VORICONAZOLE [Concomitant]
     Active Substance: VORICONAZOLE
     Indication: Candida infection
     Dosage: 0.4 GRAM, TWO TIMES A DAY
     Route: 048
  32. VORICONAZOLE [Concomitant]
     Active Substance: VORICONAZOLE
     Dosage: 0.2 GRAM, TWO TIMES A DAY
     Route: 048
  33. ALBUMIN HUMAN [Concomitant]
     Active Substance: ALBUMIN HUMAN
     Indication: Product used for unknown indication
     Dosage: UNK
     Route: 065
  34. RALTEGRAVIR [Suspect]
     Active Substance: RALTEGRAVIR
     Indication: HIV infection
     Dosage: 800 MILLIGRAM, ONCE A DAY
     Route: 065
     Dates: start: 201112

REACTIONS (13)
  - Myalgia [Unknown]
  - Neuropsychiatric symptoms [Unknown]
  - Nausea [Unknown]
  - Diarrhoea [Unknown]
  - Enterobacter infection [Unknown]
  - Neutropenia [Unknown]
  - Hepatitis cholestatic [Unknown]
  - Pancreatitis [Unknown]
  - Conductive deafness [Unknown]
  - Lymphopenia [Unknown]
  - Blood bilirubin increased [Unknown]
  - Drug ineffective [Unknown]
  - Drug resistance [Unknown]

NARRATIVE: CASE EVENT DATE: 20110101
